FAERS Safety Report 7778775-3 (Version None)
Quarter: 2011Q3

REPORT INFORMATION
  Report Type: 
  Country: None (occurrence: None)
  Receive Date: 20110926
  Receipt Date: 20110915
  Transmission Date: 20111222
  Serious: Yes (Hospitalization)
  Sender: FDA-Public Use
  Company Number: NL-JNJFOC-20110904205

PATIENT
  Age: 24 Year
  Sex: Male
  Weight: 73 kg

DRUGS (3)
  1. REMICADE [Suspect]
     Route: 042
     Dates: start: 20090331
  2. REMICADE [Suspect]
     Indication: COLITIS ULCERATIVE
     Route: 042
     Dates: start: 20090303
  3. REMICADE [Suspect]
     Route: 042
     Dates: start: 20090217

REACTIONS (3)
  - GASTROENTERITIS [None]
  - DEHYDRATION [None]
  - COLECTOMY [None]
